FAERS Safety Report 11227922 (Version 3)
Quarter: 2018Q3

REPORT INFORMATION
  Report Type: Spontaneous
  Country: US (occurrence: US)
  Receive Date: 20150630
  Receipt Date: 20180713
  Transmission Date: 20181010
  Serious: Yes (Hospitalization)
  Sender: FDA-Public Use
  Company Number: US-DSJP-DSU-2015-119933

PATIENT

DRUGS (3)
  1. BENICAR HCT [Suspect]
     Active Substance: HYDROCHLOROTHIAZIDE\OLMESARTAN MEDOXOMIL
     Indication: HYPERTENSION
     Dosage: 20/12.5 MG, QD
     Route: 048
     Dates: start: 2010, end: 20130221
  2. BENICAR HCT [Suspect]
     Active Substance: HYDROCHLOROTHIAZIDE\OLMESARTAN MEDOXOMIL
     Dosage: 40/12.5 MG, QD
     Route: 048
     Dates: start: 2010, end: 20130221
  3. BENICAR [Suspect]
     Active Substance: OLMESARTAN MEDOXOMIL
     Indication: HYPERTENSION
     Dosage: 20 MG, QD
     Dates: start: 2010, end: 20150205

REACTIONS (14)
  - Sprue-like enteropathy [Unknown]
  - Anxiety [Unknown]
  - Dizziness [Unknown]
  - Gallbladder disorder [Unknown]
  - Enteritis [Unknown]
  - Renal failure [Unknown]
  - Hypotension [Unknown]
  - Eating disorder [Unknown]
  - Pancreatic cyst [Unknown]
  - Oedema peripheral [Unknown]
  - Depression [Unknown]
  - Pancreatitis [Unknown]
  - Gastrooesophageal reflux disease [Unknown]
  - Hepatic enzyme increased [Unknown]

NARRATIVE: CASE EVENT DATE: 201307
